FAERS Safety Report 13510102 (Version 1)
Quarter: 2017Q2

REPORT INFORMATION
  Report Type: Spontaneous
  Country: US (occurrence: US)
  Receive Date: 20170503
  Receipt Date: 20170503
  Transmission Date: 20170830
  Serious: Yes (Other)
  Sender: FDA-Public Use
  Company Number: US-MYLANLABS-2017M1025919

PATIENT

DRUGS (3)
  1. ATENOLOL. [Suspect]
     Active Substance: ATENOLOL
     Indication: GLYCOGEN STORAGE DISEASE TYPE IV
     Route: 065
  2. METOPROLOL. [Suspect]
     Active Substance: METOPROLOL
     Indication: GLYCOGEN STORAGE DISEASE TYPE IV
     Route: 065
  3. NADOLOL. [Suspect]
     Active Substance: NADOLOL
     Indication: GLYCOGEN STORAGE DISEASE TYPE IV
     Route: 065

REACTIONS (3)
  - Bradycardia [Unknown]
  - Major depression [Unknown]
  - Fatigue [Unknown]
